FAERS Safety Report 23762568 (Version 1)
Quarter: 2024Q2

REPORT INFORMATION
  Report Type: Spontaneous
  Country: US (occurrence: US)
  Receive Date: 20240419
  Receipt Date: 20240419
  Transmission Date: 20240716
  Serious: No
  Sender: FDA-Public Use
  Company Number: US-PFIZER INC-202400087912

PATIENT
  Age: 77 Year
  Sex: Male
  Weight: 68.04 kg

DRUGS (1)
  1. MEKTOVI [Suspect]
     Active Substance: BINIMETINIB
     Indication: Malignant melanoma
     Dosage: 3 PILLS A DAY AND I THINK IT WAS 45

REACTIONS (1)
  - Peripheral swelling [Not Recovered/Not Resolved]
